FAERS Safety Report 5913463-7 (Version None)
Quarter: 2008Q4

REPORT INFORMATION
  Report Type: 
  Country: None (occurrence: None)
  Receive Date: 20081007
  Receipt Date: 20080910
  Transmission Date: 20090506
  Serious: Yes (Hospitalization)
  Sender: FDA-Public Use
  Company Number: MK-6011330

PATIENT
  Age: 76 Year
  Sex: Male

DRUGS (3)
  1. PREDNISOLONE [Suspect]
     Indication: PNEUMONIA
     Dosage: 1 MG;TWICE A DAY; ORAL
     Route: 048
  2. CIPROFLOXACIN [Suspect]
     Indication: PNEUMONIA
     Dosage: 500 MG; DAILY; ORAL
     Route: 048
  3. BENZYLPENICILLIN [Concomitant]

REACTIONS (3)
  - GAIT DISTURBANCE [None]
  - TENDON RUPTURE [None]
  - WALKING AID USER [None]
